FAERS Safety Report 9249299 (Version 2)
Quarter: 2013Q2

REPORT INFORMATION
  Report Type: Report from Study
  Country: DK (occurrence: DK)
  Receive Date: 20130423
  Receipt Date: 20130509
  Transmission Date: 20140414
  Serious: Yes (Hospitalization, Disabling)
  Sender: FDA-Public Use
  Company Number: DK-AMGEN-DNKCT2013011538

PATIENT
  Age: 69 Year
  Sex: Female

DRUGS (5)
  1. DENOSUMAB [Suspect]
     Indication: OSTEOPOROSIS POSTMENOPAUSAL
     Dosage: 60 MG, Q6MO
     Route: 058
     Dates: start: 20071008
  2. VITAMIN D [Concomitant]
     Indication: PROPHYLAXIS
     Dosage: 1000 IU, QD
     Dates: start: 20050311
  3. VITAMIN D [Concomitant]
     Indication: OSTEOPOROSIS
  4. CALCIUM [Concomitant]
     Indication: OSTEOPOROSIS
     Dosage: 500 MG, BID
     Dates: start: 20050311
  5. TRAVATAN [Concomitant]
     Indication: GLAUCOMA
     Dosage: UNK
     Dates: start: 20050520

REACTIONS (1)
  - Breast cancer [Recovered/Resolved]
